FAERS Safety Report 17369343 (Version 1)
Quarter: 2020Q1

REPORT INFORMATION
  Report Type: Spontaneous
  Country: US (occurrence: US)
  Receive Date: 20200203
  Receipt Date: 20200203
  Transmission Date: 20200409
  Serious: No
  Sender: FDA-Public Use
  Company Number: None

PATIENT
  Age: 30 Year
  Sex: Female
  Weight: 68.04 kg

DRUGS (6)
  1. FLONASE [Concomitant]
     Active Substance: FLUTICASONE PROPIONATE
  2. NORGESTIMATE [Concomitant]
     Active Substance: NORGESTIMATE
  3. ETHINYL  ESTRADIOL [Concomitant]
     Active Substance: ETHINYL ESTRADIOL
  4. MIRENA [Suspect]
     Active Substance: LEVONORGESTREL
     Dates: start: 20170101, end: 20180801
  5. SYMBICORT [Concomitant]
     Active Substance: BUDESONIDE\FORMOTEROL FUMARATE DIHYDRATE
  6. VENTOLIN [Concomitant]
     Active Substance: ALBUTEROL SULFATE

REACTIONS (6)
  - Muscle spasms [None]
  - Back pain [None]
  - Nausea [None]
  - Hormone level abnormal [None]
  - Vulvovaginal pain [None]
  - Weight increased [None]
